FAERS Safety Report 6827658-1 (Version None)
Quarter: 2010Q3

REPORT INFORMATION
  Report Type: 
  Country: None (occurrence: None)
  Receive Date: 20100709
  Receipt Date: 20070123
  Transmission Date: 20110219
  Serious: No
  Sender: FDA-Public Use
  Company Number: US-PFIZER INC-2007007089

PATIENT
  Sex: Female
  Weight: 57.15 kg

DRUGS (4)
  1. CHANTIX [Suspect]
     Indication: SMOKING CESSATION THERAPY
     Dates: start: 20061201, end: 20070101
  2. PREMARIN [Concomitant]
  3. PROVERA [Concomitant]
  4. LOVASTATIN [Concomitant]
     Indication: BLOOD CHOLESTEROL INCREASED

REACTIONS (7)
  - ABDOMINAL DISTENSION [None]
  - ABDOMINAL PAIN UPPER [None]
  - FLATULENCE [None]
  - HYPERHIDROSIS [None]
  - MIDDLE INSOMNIA [None]
  - NIGHTMARE [None]
  - POLLAKIURIA [None]
